FAERS Safety Report 7150806-3 (Version None)
Quarter: 2010Q4

REPORT INFORMATION
  Report Type: 
  Country: None (occurrence: None)
  Receive Date: 20101207
  Receipt Date: 20101207
  Transmission Date: 20110411
  Serious: Yes (Other)
  Sender: FDA-Public Use
  Company Number: None

PATIENT
  Age: 31 Year
  Sex: Female
  Weight: 63 kg

DRUGS (1)
  1. BUPROPION [Suspect]
     Indication: DEPRESSION
     Dosage: 100 MG EVERYDAY PO
     Route: 048
     Dates: start: 20101117, end: 20101201

REACTIONS (2)
  - GRAND MAL CONVULSION [None]
  - HEADACHE [None]
